FAERS Safety Report 15698481 (Version 1)
Quarter: 2018Q4

REPORT INFORMATION
  Report Type: Spontaneous
  Country: US (occurrence: US)
  Receive Date: 20181206
  Receipt Date: 20181206
  Transmission Date: 20190205
  Serious: Yes (Other)
  Sender: FDA-Public Use
  Company Number: None

PATIENT
  Age: 66 Year
  Sex: Female
  Weight: 56.25 kg

DRUGS (8)
  1. MELATONIN(5MG) [Concomitant]
  2. LACRISERT [Suspect]
     Active Substance: HYDROXYPROPYL CELLULOSE
     Indication: DRY EYE
     Dosage: ?          OTHER STRENGTH:60S;QUANTITY:60 SUPPOSITORY(IES);?
     Route: 047
     Dates: start: 20180701, end: 20180730
  3. FLAXSEED OIL CAPSULES(L000 MG) [Concomitant]
  4. DIM-PLUS CAPSULES (ESTROGEN METABOLISM-L00MG) [Concomitant]
  5. DUAVEE TABLETS (.45MG/20MG) [Concomitant]
  6. GLUCOSAMINE CHONDROITIN CAPS(1500MG/1200MG) [Concomitant]
  7. NPTHYROID TABLETS(60 MG) [Concomitant]
  8. CALCIUM CAPSULES(700 MG) [Concomitant]

REACTIONS (6)
  - Product complaint [None]
  - Device difficult to use [None]
  - Complication associated with device [None]
  - Medical device pain [None]
  - Injury associated with device [None]
  - Corneal abrasion [None]

NARRATIVE: CASE EVENT DATE: 20180701
